FAERS Safety Report 6964602-0 (Version None)
Quarter: 2010Q3

REPORT INFORMATION
  Report Type: 
  Country: None (occurrence: None)
  Receive Date: 20100903
  Receipt Date: 20100825
  Transmission Date: 20110219
  Serious: Yes (Other)
  Sender: FDA-Public Use
  Company Number: RU-BAYER-201035687GPV

PATIENT
  Age: 42 Year
  Sex: Female

DRUGS (1)
  1. MIRENA [Suspect]
     Indication: CONTRACEPTION
     Route: 015
     Dates: start: 20100514

REACTIONS (7)
  - APNOEA [None]
  - ASTHMA [None]
  - COUGH [None]
  - DYSPNOEA [None]
  - HYPOVENTILATION [None]
  - RESPIRATORY RATE INCREASED [None]
  - VASOMOTOR RHINITIS [None]
